FAERS Safety Report 8421984-0 (Version None)
Quarter: 2012Q2

REPORT INFORMATION
  Report Type: 
  Country: None (occurrence: None)
  Receive Date: 20120323
  Receipt Date: 20111214
  Transmission Date: 20120825
  Serious: Yes (Hospitalization)
  Sender: FDA-Public Use
  Company Number: 163-21880-11122101

PATIENT
  Age: 77 Year
  Sex: Male

DRUGS (2)
  1. REVLIMID [Suspect]
     Indication: MULTIPLE MYELOMA
     Dosage: 25 MG, DAILY FOR 21, PO ; 15 MG, 4X A WEEK; THEN ONE WEEK OFF, PO
     Route: 048
     Dates: start: 20100918
  2. REVLIMID [Suspect]
     Indication: MULTIPLE MYELOMA
     Dosage: 25 MG, DAILY FOR 21, PO ; 15 MG, 4X A WEEK; THEN ONE WEEK OFF, PO
     Route: 048
     Dates: start: 20110101

REACTIONS (1)
  - THROMBOSIS [None]
